FAERS Safety Report 10035624 (Version 2)
Quarter: 2014Q2

REPORT INFORMATION
  Report Type: Spontaneous
  Country: NL (occurrence: NL)
  Receive Date: 20140325
  Receipt Date: 20140407
  Transmission Date: 20141212
  Serious: Yes (Life-Threatening, Other)
  Sender: FDA-Public Use
  Company Number: NL-TEVA-468624ISR

PATIENT
  Age: 60 Year
  Sex: Female
  Weight: 48 kg

DRUGS (2)
  1. TAMOXIFEN TABLET 30MG [Suspect]
     Indication: BREAST CANCER
     Dosage: 30 MILLIGRAM DAILY; ONCE DAILY 1 PIECE (TABLET).
     Route: 048
     Dates: start: 201307, end: 201402
  2. MIRTAZAPINE TABLET 15MG [Concomitant]
     Dosage: 3 DOSAGE FORMS DAILY; ONCE DAILY 3 PIECES (TABLETS).
     Route: 048

REACTIONS (7)
  - Psychotic disorder [Recovered/Resolved with Sequelae]
  - Major depression [Recovering/Resolving]
  - Anger [Recovering/Resolving]
  - Anxiety [Not Recovered/Not Resolved]
  - Suspiciousness [Recovering/Resolving]
  - Personality change [Recovering/Resolving]
  - Feeling abnormal [Recovering/Resolving]
